FAERS Safety Report 10040727 (Version 1)
Quarter: 2014Q1

REPORT INFORMATION
  Report Type: Spontaneous
  Country: US (occurrence: None)
  Receive Date: 20140326
  Receipt Date: 20140326
  Transmission Date: 20141002
  Serious: Yes (Other)
  Sender: FDA-Public Use
  Company Number: None

PATIENT
  Age: 66 Year
  Sex: Female
  Weight: 58.97 kg

DRUGS (1)
  1. RECLAST [Suspect]
     Indication: BONE DENSITY DECREASED
     Dates: start: 20140321

REACTIONS (15)
  - Chills [None]
  - Pyrexia [None]
  - Lethargy [None]
  - Pain [None]
  - Nausea [None]
  - Musculoskeletal pain [None]
  - Back pain [None]
  - Pain in extremity [None]
  - Fluid retention [None]
  - Pollakiuria [None]
  - Asthenia [None]
  - Fatigue [None]
  - Joint range of motion decreased [None]
  - Headache [None]
  - Muscular weakness [None]
